FAERS Safety Report 12381595 (Version 1)
Quarter: 2016Q2

REPORT INFORMATION
  Report Type: Report from Study
  Country: JP (occurrence: JP)
  Receive Date: 20160518
  Receipt Date: 20160518
  Transmission Date: 20160815
  Serious: Yes (Hospitalization)
  Sender: FDA-Public Use
  Company Number: JP-GLAXOSMITHKLINE-A201002800

PATIENT
  Age: 31 Year
  Sex: Female

DRUGS (2)
  1. DEPAKENE [Suspect]
     Active Substance: VALPROIC ACID
     Route: 048
  2. LAMOTRIGINE. [Suspect]
     Active Substance: LAMOTRIGINE
     Indication: EPILEPSY
     Route: 048
     Dates: start: 20100217, end: 20100227

REACTIONS (2)
  - Pyrexia [Unknown]
  - Generalised erythema [Recovered/Resolved]

NARRATIVE: CASE EVENT DATE: 20100225
